FAERS Safety Report 7860362-X (Version None)
Quarter: 2011Q4

REPORT INFORMATION
  Report Type: 
  Country: None (occurrence: None)
  Receive Date: 20111027
  Receipt Date: 20111014
  Transmission Date: 20120403
  Serious: Yes (Hospitalization)
  Sender: FDA-Public Use
  Company Number: US-ELI_LILLY_AND_COMPANY-US201101003911

PATIENT
  Sex: Female
  Weight: 111.57 kg

DRUGS (21)
  1. PROZAC [Concomitant]
  2. FORTEO [Suspect]
     Dosage: 20 UG, QD
     Route: 058
  3. LIPITOR [Concomitant]
  4. VITAMIN E [Concomitant]
  5. FORTEO [Suspect]
     Dosage: 20 UG, QD
     Route: 058
  6. COD LIVER OIL [Concomitant]
  7. FORTEO [Suspect]
     Dosage: 20 UG, DAILY (1/D)
     Route: 058
  8. FISH OIL [Concomitant]
  9. VITAMIN B COMPLEX CAP [Concomitant]
  10. FORTEO [Suspect]
     Dosage: 20 UG, QD
     Route: 058
  11. FORTEO [Suspect]
     Dosage: 20 UG, QD
     Route: 058
  12. ASPIRIN [Concomitant]
  13. TRAMADOL HCL [Concomitant]
  14. MULTI-VITAMIN [Concomitant]
  15. LYRICA [Concomitant]
     Indication: NEURALGIA
  16. VITAMIN D [Concomitant]
  17. FORTEO [Suspect]
     Indication: OSTEOPOROSIS
     Dosage: 20 UG, DAILY (1/D)
     Route: 058
     Dates: start: 20101001
  18. CRESTOR [Concomitant]
  19. CALCIUM CARBONATE [Concomitant]
     Indication: COW'S MILK INTOLERANCE
  20. COZAAR [Concomitant]
  21. VESICARE [Concomitant]

REACTIONS (18)
  - RADICULOPATHY [None]
  - SPINAL CLAUDICATION [None]
  - EXOSTOSIS [None]
  - INJECTION SITE PAIN [None]
  - PAIN IN EXTREMITY [None]
  - MUSCULOSKELETAL DISCOMFORT [None]
  - MUSCULAR WEAKNESS [None]
  - ARTHRALGIA [None]
  - MUSCLE SPASMS [None]
  - HYPOAESTHESIA [None]
  - SCIATIC NERVE INJURY [None]
  - ASTHENIA [None]
  - INJECTION SITE HAEMATOMA [None]
  - BACK DISORDER [None]
  - GLYCOSYLATED HAEMOGLOBIN INCREASED [None]
  - SPINAL COLUMN STENOSIS [None]
  - HALLUCINATION [None]
  - CONSTIPATION [None]
